FAERS Safety Report 6048384-5 (Version None)
Quarter: 2009Q1

REPORT INFORMATION
  Report Type: 
  Country: None (occurrence: None)
  Receive Date: 20090123
  Receipt Date: 20090115
  Transmission Date: 20090719
  Serious: Yes (Hospitalization, Disabling)
  Sender: FDA-Public Use
  Company Number: CA-ASTRAZENECA-2009UW01455

PATIENT
  Age: 60 Year
  Sex: Male
  Weight: 127 kg

DRUGS (1)
  1. CRESTOR [Suspect]
     Route: 048

REACTIONS (14)
  - ASTHENIA [None]
  - BALANCE DISORDER [None]
  - CHROMATURIA [None]
  - DIZZINESS [None]
  - EXERCISE TOLERANCE DECREASED [None]
  - GAIT DISTURBANCE [None]
  - HYPOAESTHESIA [None]
  - HYPOTONIA [None]
  - JOINT SWELLING [None]
  - MYALGIA [None]
  - NIGHT SWEATS [None]
  - PAIN IN EXTREMITY [None]
  - SENSORY LOSS [None]
  - URINE ODOUR ABNORMAL [None]
